FAERS Safety Report 4277661-3 (Version None)
Quarter: 2004Q1

REPORT INFORMATION
  Report Type: 
  Country: None (occurrence: None)
  Receive Date: 20040121
  Receipt Date: 20040112
  Transmission Date: 20041129
  Serious: Yes (Death, Other)
  Sender: FDA-Public Use
  Company Number: 2003114994

PATIENT
  Age: 48 Year
  Sex: Male
  Weight: 40.8237 kg

DRUGS (2)
  1. VFEND [Suspect]
     Indication: MENINGITIS CRYPTOCOCCAL
     Dosage: 800 MG (DAILY), ORAL
     Route: 048
     Dates: start: 20031008, end: 20031123
  2. ALL OTHER THERAPEUTIC PRODUCTS [Concomitant]

REACTIONS (5)
  - ABDOMINAL DISCOMFORT [None]
  - CEREBRAL ASPERGILLOSIS [None]
  - COLOUR VISION TESTS ABNORMAL [None]
  - VISUAL ACUITY REDUCED [None]
  - VISUAL FIELD DEFECT [None]
